FAERS Safety Report 6359386-3 (Version None)
Quarter: 2009Q3

REPORT INFORMATION
  Report Type: 
  Country: None (occurrence: None)
  Receive Date: 20090917
  Receipt Date: 20090909
  Transmission Date: 20100115
  Serious: Yes (Life-Threatening)
  Sender: FDA-Public Use
  Company Number: JP-BAYER-200912988BYL

PATIENT
  Age: 77 Year
  Sex: Female
  Weight: 36 kg

DRUGS (14)
  1. AVELOX [Suspect]
     Indication: PNEUMONIA
     Dosage: TOTAL DAILY DOSE: 400 MG  UNIT DOSE: 400 MG
     Route: 048
     Dates: start: 20090729, end: 20090801
  2. MUCOSOLVAN [Suspect]
     Indication: PNEUMONIA
     Dosage: TOTAL DAILY DOSE: 45 MG  UNIT DOSE: 15 MG
     Route: 048
     Dates: start: 20090729, end: 20090801
  3. LEVOFLOXACIN [Suspect]
     Indication: PNEUMONIA
     Dosage: TOTAL DAILY DOSE: 400 MG  UNIT DOSE: 100 MG
     Route: 048
     Dates: start: 20090724, end: 20090729
  4. HOKUNALIN:TAPE [Suspect]
     Indication: PNEUMONIA
     Dosage: TOTAL DAILY DOSE: 2 MG  UNIT DOSE: 2 MG
     Route: 062
     Dates: start: 20090729, end: 20090801
  5. METHYLEPHEDRINE HYDROCHLORIDE [Suspect]
     Indication: PNEUMONIA
     Route: 048
     Dates: start: 20090729, end: 20090801
  6. MEDICON [Suspect]
     Indication: PNEUMONIA
     Route: 048
     Dates: start: 20090729, end: 20090801
  7. HUSTAGIN [Suspect]
     Indication: PNEUMONIA
     Route: 048
     Dates: start: 20090729, end: 20090801
  8. PEON [Concomitant]
     Indication: BACK PAIN
     Dosage: TOTAL DAILY DOSE: 80 MG
     Route: 048
     Dates: end: 20090801
  9. ARICEPT [Concomitant]
     Indication: DEMENTIA
     Dosage: TOTAL DAILY DOSE: 10 MG
     Route: 048
     Dates: end: 20090801
  10. AMLODIPINE [Concomitant]
     Indication: HYPERTENSION
     Dosage: TOTAL DAILY DOSE: 2.5 MG
     Route: 048
     Dates: end: 20090801
  11. ASTOS-CA [Concomitant]
     Indication: OSTEOPOROSIS
     Dosage: TOTAL DAILY DOSE: 200 MG
     Route: 048
     Dates: end: 20090801
  12. ASPIRIN [Concomitant]
     Indication: CEREBRAL INFARCTION
     Dosage: TOTAL DAILY DOSE: 100 MG  UNIT DOSE: 100 MG
     Route: 048
     Dates: end: 20090801
  13. PRORENAL [Concomitant]
     Indication: SPINAL COLUMN STENOSIS
     Dosage: TOTAL DAILY DOSE: 15 ?G
     Route: 048
     Dates: end: 20090801
  14. SELBEX [Concomitant]
     Indication: GASTRIC ULCER
     Dosage: TOTAL DAILY DOSE: 150 MG
     Route: 048
     Dates: end: 20090801

REACTIONS (2)
  - ACUTE RESPIRATORY FAILURE [None]
  - TRACHEAL STENOSIS [None]
